FAERS Safety Report 5611072-0 (Version None)
Quarter: 2008Q1

REPORT INFORMATION
  Report Type: 
  Country: None (occurrence: None)
  Receive Date: 20080201
  Receipt Date: 20080126
  Transmission Date: 20080703
  Serious: Yes (Life-Threatening, Hospitalization, Disabling, Other)
  Sender: FDA-Public Use
  Company Number: US-AVENTIS-200810603US

PATIENT

DRUGS (3)
  1. APIDRA [Suspect]
     Indication: TYPE 1 DIABETES MELLITUS
     Dosage: DOSE: UNK
  2. HUMALOG [Concomitant]
     Dosage: DOSE: CONTINUOUS INFUSION VIA PUMP
     Route: 058
  3. NOVOLOG [Concomitant]
     Dosage: DOSE: CONTINUOUS INFUSION VIA PUMP

REACTIONS (2)
  - DIABETIC KETOACIDOSIS [None]
  - DRUG INEFFECTIVE [None]
